FAERS Safety Report 9233609 (Version 1)
Quarter: 2013Q2

REPORT INFORMATION
  Report Type: Spontaneous
  Country: US (occurrence: US)
  Receive Date: 20130416
  Receipt Date: 20130416
  Transmission Date: 20140414
  Serious: No
  Sender: FDA-Public Use
  Company Number: US-BANPHARM-20130539

PATIENT
  Age: 81 Year
  Sex: Female
  Weight: 53.07 kg

DRUGS (4)
  1. ALEVE LIQUID GELS 220MG [Suspect]
     Dosage: 1 DF, PRN,
     Route: 048
     Dates: start: 2010, end: 20130107
  2. METOPROPOL [Concomitant]
  3. LOW DOSE ASPIRIN REGIMEN BAYER?- UNKNOWN [Concomitant]
  4. VITAMIN D [Concomitant]

REACTIONS (2)
  - Abdominal pain upper [Recovered/Resolved]
  - Pruritus [Recovered/Resolved]
